FAERS Safety Report 4681189-6 (Version None)
Quarter: 2005Q2

REPORT INFORMATION
  Report Type: 
  Country: None (occurrence: None)
  Receive Date: 20050602
  Receipt Date: 20050602
  Transmission Date: 20051028
  Serious: No
  Sender: FDA-Public Use
  Company Number: None

PATIENT
  Sex: Male
  Weight: 64 kg

DRUGS (1)
  1. GEMCITABINE [Suspect]
     Indication: PANCREATIC CARCINOMA
     Dosage: 1,000 MG/M2 IV DAYS 1, 8, 15 OF CYCLE 1 AND DAYS 1, 8, 15 OF ALL SUBSEQUENT CYCLES
     Route: 042
     Dates: start: 20040902

REACTIONS (16)
  - ABDOMINAL DISCOMFORT [None]
  - ASTHENIA [None]
  - AZOTAEMIA [None]
  - BACK PAIN [None]
  - BLOOD ALBUMIN DECREASED [None]
  - CONFUSIONAL STATE [None]
  - DYSPEPSIA [None]
  - FALL [None]
  - HAEMORRHOIDAL HAEMORRHAGE [None]
  - HICCUPS [None]
  - HYPOXIA [None]
  - LOSS OF CONSCIOUSNESS [None]
  - PANCYTOPENIA [None]
  - PARACENTESIS [None]
  - PARANOIA [None]
  - VOMITING [None]
